FAERS Safety Report 25517624 (Version 2)
Quarter: 2025Q3

REPORT INFORMATION
  Report Type: Spontaneous
  Country: RS (occurrence: RS)
  Receive Date: 20250704
  Receipt Date: 20250728
  Transmission Date: 20251021
  Serious: Yes (Other)
  Sender: ALEXION PHARMACEUTICALS
  Company Number: RS-ASTRAZENECA-202506BKN020002RS

PATIENT
  Age: 61 Year

DRUGS (2)
  1. IMFINZI [Suspect]
     Active Substance: DURVALUMAB
     Indication: Non-small cell lung cancer
     Route: 065
  2. GEMCITABINE CISPLATIN [Concomitant]
     Indication: Non-small cell lung cancer
     Route: 065

REACTIONS (1)
  - Malignant neoplasm progression [Unknown]
